FAERS Safety Report 23922105 (Version 2)
Quarter: 2025Q4

REPORT INFORMATION
  Report Type: Report from Study
  Country: CA (occurrence: CA)
  Receive Date: 20240531
  Receipt Date: 20251020
  Transmission Date: 20260117
  Serious: Yes (Death, Other)
  Sender: JAZZ
  Company Number: CA-JAZZ PHARMACEUTICALS-2024-CA-008204

PATIENT

DRUGS (1)
  1. LURBINECTEDIN [Suspect]
     Active Substance: LURBINECTEDIN
     Indication: Small cell lung cancer metastatic
     Dosage: UNK

REACTIONS (1)
  - Acute myeloid leukaemia [Fatal]
